FAERS Safety Report 22871296 (Version 5)
Quarter: 2023Q4

REPORT INFORMATION
  Report Type: Report from Study
  Country: JP (occurrence: None)
  Receive Date: 20230828
  Receipt Date: 20231227
  Transmission Date: 20240110
  Serious: Yes (Death, Life-Threatening, Hospitalization, Other)
  Sender: FDA-Public Use
  Company Number: 2023A194555

PATIENT
  Age: 60 Year
  Sex: Male
  Weight: 56 kg

DRUGS (5)
  1. IMFINZI [Suspect]
     Active Substance: DURVALUMAB
     Indication: Non-small cell lung cancer
     Dosage: DOSE UNKNOWN
     Route: 041
     Dates: start: 20230801, end: 20230801
  2. IMJUDO [Suspect]
     Active Substance: TREMELIMUMAB\TREMELIMUMAB-ACTL
     Indication: Non-small cell lung cancer
     Dosage: DOSE UNKNOWN
     Route: 041
     Dates: start: 20230801, end: 20230801
  3. CALONAL [Suspect]
     Active Substance: ACETAMINOPHEN
     Indication: Pyrexia
  4. CARBOPLATIN [Concomitant]
     Active Substance: CARBOPLATIN
  5. PACLITAXEL [Concomitant]
     Active Substance: PACLITAXEL

REACTIONS (12)
  - Metastases to liver [Fatal]
  - Liver abscess [Fatal]
  - Non-small cell lung cancer [Fatal]
  - Hepatic failure [Fatal]
  - Febrile neutropenia [Recovered/Resolved]
  - Platelet count decreased [Recovering/Resolving]
  - Pyrexia [Recovering/Resolving]
  - Rash maculo-papular [Recovered/Resolved]
  - Decreased appetite [Recovering/Resolving]
  - Nausea [Recovering/Resolving]
  - Hyponatraemia [Recovered/Resolved]
  - Hepatobiliary disease [Recovering/Resolving]

NARRATIVE: CASE EVENT DATE: 20230801
